FAERS Safety Report 24376234 (Version 1)
Quarter: 2024Q3

REPORT INFORMATION
  Report Type: Spontaneous
  Country: US (occurrence: None)
  Receive Date: 20240927
  Receipt Date: 20240927
  Transmission Date: 20241016
  Serious: No
  Sender: Public
  Company Number: None

PATIENT
  Age: 37 Year
  Sex: Female
  Weight: 63 kg

DRUGS (5)
  1. EMGALITY [Suspect]
     Active Substance: GALCANEZUMAB-GNLM
     Indication: Migraine
     Dosage: 1 INJECTION MONTHLY TOPICAL ?
     Route: 061
     Dates: start: 20240920
  2. SUMATRIPTAN [Concomitant]
     Active Substance: SUMATRIPTAN
  3. OMEGA 3 [Concomitant]
     Active Substance: CAPSAICIN
  4. DIETARY SUPPLEMENT [Concomitant]
     Active Substance: DIETARY SUPPLEMENT
  5. Thrive pill [Concomitant]

REACTIONS (6)
  - Dizziness [None]
  - Panic attack [None]
  - Insomnia [None]
  - Fear [None]
  - Mental disorder [None]
  - Depression [None]

NARRATIVE: CASE EVENT DATE: 20240923
